FAERS Safety Report 7903980-2 (Version None)
Quarter: 2011Q4

REPORT INFORMATION
  Report Type: 
  Country: None (occurrence: None)
  Receive Date: 20111109
  Receipt Date: 20111031
  Transmission Date: 20120403
  Serious: Yes (Hospitalization, Other)
  Sender: FDA-Public Use
  Company Number: US-ASTRAZENECA-2010SE36288

PATIENT
  Age: 69 Year
  Sex: Female
  Weight: 81.6 kg

DRUGS (8)
  1. PULMICORT [Suspect]
     Dosage: 0.5 MG TOTAL DAILY DOSE, TID
     Route: 055
     Dates: start: 20050101
  2. LYRICA [Concomitant]
  3. NEXIUM [Suspect]
     Route: 048
     Dates: start: 20050101
  4. IPRATROPIUM BROMIDE [Concomitant]
  5. PULMICORT [Suspect]
     Route: 055
  6. SYMBICORT [Suspect]
     Dosage: TOTAL DAILY DOSE 160-4.5MCG PRN
     Route: 055
     Dates: start: 20080101
  7. PULMICORT [Suspect]
     Route: 055
  8. ALBUTEROL [Concomitant]

REACTIONS (6)
  - ANKLE FRACTURE [None]
  - NEUROPATHY PERIPHERAL [None]
  - GENITAL DISORDER FEMALE [None]
  - DRUG EFFECT DECREASED [None]
  - OSTEOARTHRITIS [None]
  - INAPPROPRIATE SCHEDULE OF DRUG ADMINISTRATION [None]
